FAERS Safety Report 19355889 (Version 3)
Quarter: 2021Q4

REPORT INFORMATION
  Report Type: Report from Study
  Country: KR (occurrence: KR)
  Receive Date: 20210602
  Receipt Date: 20211123
  Transmission Date: 20220303
  Serious: Yes (Other)
  Sender: FDA-Public Use
  Company Number: KR-KYOWAKIRIN-2021AKK009103

PATIENT
  Age: 54 Year
  Sex: Male

DRUGS (54)
  1. FILGRASTIM [Suspect]
     Active Substance: FILGRASTIM
     Indication: Product used for unknown indication
     Dosage: 1 UNK, QD
     Route: 065
     Dates: start: 20170331, end: 20170403
  2. RAMUCIRUMAB [Concomitant]
     Active Substance: RAMUCIRUMAB
     Indication: Product used for unknown indication
     Dosage: UNK UNK, QD
     Dates: start: 20170320
  3. RAMUCIRUMAB [Concomitant]
     Active Substance: RAMUCIRUMAB
     Dosage: UNK UNK, QD
     Dates: start: 20170411
  4. RAMUCIRUMAB [Concomitant]
     Active Substance: RAMUCIRUMAB
     Dosage: UNK UNK, QD
     Dates: start: 20170427
  5. RAMUCIRUMAB [Concomitant]
     Active Substance: RAMUCIRUMAB
     Dosage: UNK UNK, QD
     Dates: start: 20110607
  6. RAMUCIRUMAB [Concomitant]
     Active Substance: RAMUCIRUMAB
     Dosage: UNK UNK, QD
     Dates: start: 20110621
  7. RAMUCIRUMAB [Concomitant]
     Active Substance: RAMUCIRUMAB
     Dosage: UNK UNK, QD
     Dates: start: 20110706
  8. ACECLOFENAC [Concomitant]
     Active Substance: ACECLOFENAC
     Indication: Product used for unknown indication
     Dosage: 2 DF, QD
     Dates: start: 20170320, end: 20170324
  9. ACECLOFENAC [Concomitant]
     Active Substance: ACECLOFENAC
     Dosage: 2 DF, QD
     Dates: start: 20170413, end: 20170427
  10. ACECLOFENAC [Concomitant]
     Active Substance: ACECLOFENAC
     Dosage: 2 DF, QD
     Dates: start: 20170519, end: 20170602
  11. ALBUMIN HUMAN [Concomitant]
     Active Substance: ALBUMIN HUMAN
     Indication: Product used for unknown indication
     Dosage: 1 UNK, QD
     Dates: start: 20170622, end: 20170622
  12. ALBUMIN HUMAN [Concomitant]
     Active Substance: ALBUMIN HUMAN
     Dosage: 1 UNK, QD
     Dates: start: 20170705, end: 20170705
  13. ALBUMIN HUMAN [Concomitant]
     Active Substance: ALBUMIN HUMAN
     Dosage: 1 UNK, QD
     Dates: start: 20170710, end: 20170710
  14. ALBUMIN HUMAN [Concomitant]
     Active Substance: ALBUMIN HUMAN
     Dosage: 1 UNK, QD
     Dates: start: 20170331, end: 20170331
  15. ALBUMIN HUMAN [Concomitant]
     Active Substance: ALBUMIN HUMAN
     Dosage: 1 UNK, QD
     Dates: start: 20170413, end: 20170413
  16. UREA [Concomitant]
     Active Substance: UREA
     Indication: Product used for unknown indication
     Dosage: 50 UNK
     Dates: start: 20170413
  17. CEFTRIAXONE [Concomitant]
     Active Substance: CEFTRIAXONE
     Indication: Product used for unknown indication
     Dosage: 2 UNK, QD
     Dates: start: 20170331, end: 20170331
  18. CHLORPHENIRAMINE MALEATE [Concomitant]
     Active Substance: CHLORPHENIRAMINE MALEATE
     Indication: Product used for unknown indication
     Dosage: 4 MILLIGRAM, QD
     Dates: end: 20170320
  19. CHLORPHENIRAMINE MALEATE [Concomitant]
     Active Substance: CHLORPHENIRAMINE MALEATE
     Dosage: 4 MILLIGRAM, QD
     Dates: end: 20170411
  20. CHLORPHENIRAMINE MALEATE [Concomitant]
     Active Substance: CHLORPHENIRAMINE MALEATE
     Dosage: 4 MILLIGRAM, QD
     Dates: end: 20170427
  21. CHLORPHENIRAMINE MALEATE [Concomitant]
     Active Substance: CHLORPHENIRAMINE MALEATE
     Dosage: 4 MILLIGRAM, QD
     Dates: end: 20170518
  22. CHLORPHENIRAMINE MALEATE [Concomitant]
     Active Substance: CHLORPHENIRAMINE MALEATE
     Dosage: 4 MILLIGRAM, QD
     Dates: end: 20170607
  23. CHLORPHENIRAMINE MALEATE [Concomitant]
     Active Substance: CHLORPHENIRAMINE MALEATE
     Dosage: 4 MILLIGRAM, QD
     Dates: end: 20170621
  24. CHLORPHENIRAMINE MALEATE [Concomitant]
     Active Substance: CHLORPHENIRAMINE MALEATE
     Dosage: 4 MILLIGRAM, QD
     Dates: end: 20170706
  25. DEXAMETHASONE [Concomitant]
     Active Substance: DEXAMETHASONE
     Indication: Product used for unknown indication
     Dosage: 10 MILLIGRAM, QD
     Dates: end: 20170320
  26. DEXAMETHASONE [Concomitant]
     Active Substance: DEXAMETHASONE
     Dosage: 10 MILLIGRAM, QD
     Dates: end: 20170411
  27. DEXAMETHASONE [Concomitant]
     Active Substance: DEXAMETHASONE
     Dosage: 10 MILLIGRAM, QD
     Dates: end: 20170427
  28. DEXAMETHASONE [Concomitant]
     Active Substance: DEXAMETHASONE
     Dosage: 10 MILLIGRAM, QD
     Dates: end: 20170518
  29. FAMOTIDINE [Concomitant]
     Active Substance: FAMOTIDINE
     Indication: Product used for unknown indication
     Dosage: 1 UNK, QD
     Dates: start: 20170411
  30. FAMOTIDINE [Concomitant]
     Active Substance: FAMOTIDINE
     Dosage: 1 UNK, QD
     Dates: start: 20170324
  31. FAMOTIDINE [Concomitant]
     Active Substance: FAMOTIDINE
     Dosage: 2 UNK, QD
     Dates: start: 20170413
  32. FAMOTIDINE [Concomitant]
     Active Substance: FAMOTIDINE
     Dosage: 20 MILLIGRAM, QD
     Dates: start: 20170320, end: 20170320
  33. FAMOTIDINE [Concomitant]
     Active Substance: FAMOTIDINE
     Dosage: 20 MILLIGRAM, QD
     Dates: start: 20170427, end: 20170427
  34. FAMOTIDINE [Concomitant]
     Active Substance: FAMOTIDINE
     Dosage: 20 MILLIGRAM, QD
     Dates: start: 20170518, end: 20170518
  35. FUROSEMIDE [Concomitant]
     Active Substance: FUROSEMIDE
     Indication: Product used for unknown indication
     Dosage: UNK
     Dates: start: 20170408, end: 20170413
  36. FUROSEMIDE [Concomitant]
     Active Substance: FUROSEMIDE
     Dosage: 1 DF
     Dates: start: 20170406, end: 20170411
  37. FUROSEMIDE [Concomitant]
     Active Substance: FUROSEMIDE
     Dosage: 40 MILLIGRAM, QD
     Dates: start: 20170413, end: 20170419
  38. METOCLOPRAMIDE [Concomitant]
     Active Substance: METOCLOPRAMIDE
     Indication: Product used for unknown indication
     Dosage: 1DF UNK
     Dates: start: 20170427, end: 20170427
  39. METOCLOPRAMIDE [Concomitant]
     Active Substance: METOCLOPRAMIDE
     Dosage: 1DF UNK
     Dates: start: 20170518, end: 20170518
  40. METOCLOPRAMIDE [Concomitant]
     Active Substance: METOCLOPRAMIDE
     Dosage: 3 DF UNK
     Dates: start: 20170320, end: 20170320
  41. PACLITAXEL [Concomitant]
     Active Substance: PACLITAXEL
     Indication: Product used for unknown indication
     Dosage: 50 UNK, QD
     Dates: end: 20170427
  42. PACLITAXEL [Concomitant]
     Active Substance: PACLITAXEL
     Dosage: 50 UNK, QD
     Dates: end: 20170504
  43. PACLITAXEL [Concomitant]
     Active Substance: PACLITAXEL
     Dosage: 50 UNK, QD
     Dates: end: 20170518
  44. PACLITAXEL [Concomitant]
     Active Substance: PACLITAXEL
     Dosage: 65 UNK, QD
     Dates: end: 20170411
  45. PACLITAXEL [Concomitant]
     Active Substance: PACLITAXEL
     Dosage: 80 UNK, QD
     Dates: end: 20170320
  46. PACLITAXEL [Concomitant]
     Active Substance: PACLITAXEL
     Dosage: 80 UNK, QD
     Dates: end: 20170327
  47. PIPERACILLIN AND TAZOBACTAM [Concomitant]
     Active Substance: PIPERACILLIN SODIUM\TAZOBACTAM SODIUM
     Indication: Product used for unknown indication
     Dosage: 4 UNK, QD
     Dates: start: 20170331, end: 20170407
  48. POTASSIUM CHLORIDE [Concomitant]
     Active Substance: POTASSIUM CHLORIDE
     Indication: Product used for unknown indication
     Dosage: 3 DF, QD
     Dates: start: 20170407, end: 20170407
  49. POTASSIUM CHLORIDE [Concomitant]
     Active Substance: POTASSIUM CHLORIDE
     Dosage: 10 UNK, QD
     Dates: start: 20170407, end: 20170407
  50. PROPACETAMOL [Concomitant]
     Active Substance: PROPACETAMOL
     Indication: Product used for unknown indication
     Dosage: 1 UNK
     Dates: start: 20170331, end: 20170402
  51. SILYMARIN 100 [Concomitant]
     Indication: Product used for unknown indication
     Dosage: 2 UNK, QD
     Dates: start: 20170705
  52. SODIUM CHLORIDE [Concomitant]
     Active Substance: SODIUM CHLORIDE
     Indication: Product used for unknown indication
     Dosage: 1000 UNK
     Dates: start: 20170331, end: 20170405
  53. URSODIOL [Concomitant]
     Active Substance: URSODIOL
     Indication: Product used for unknown indication
     Dosage: 1 DF, QD
     Dates: start: 20170223, end: 20170330
  54. URSODIOL [Concomitant]
     Active Substance: URSODIOL
     Dosage: 1 DF, QD
     Dates: start: 20170411

REACTIONS (15)
  - Hypokalaemia [Recovered/Resolved]
  - Neuropathy peripheral [Not Recovered/Not Resolved]
  - Abdominal pain [Recovered/Resolved]
  - Decreased appetite [Recovered/Resolved]
  - Diarrhoea [Recovered/Resolved]
  - Blood bilirubin increased [Not Recovered/Not Resolved]
  - Aspartate aminotransferase increased [Recovering/Resolving]
  - Alanine aminotransferase increased [Recovered/Resolved]
  - Neutrophil count decreased [Recovered/Resolved]
  - Hypoalbuminaemia [Recovered/Resolved]
  - Hypophosphataemia [Recovered/Resolved]
  - Insomnia [Recovered/Resolved]
  - Oedema peripheral [Recovered/Resolved]
  - Platelet count decreased [Not Recovered/Not Resolved]
  - Asthenia [Not Recovered/Not Resolved]

NARRATIVE: CASE EVENT DATE: 20170331
